FAERS Safety Report 19623446 (Version 1)
Quarter: 2021Q3

REPORT INFORMATION
  Report Type: Spontaneous
  Country: JP (occurrence: JP)
  Receive Date: 20210728
  Receipt Date: 20210728
  Transmission Date: 20211014
  Serious: Yes (Other)
  Sender: FDA-Public Use
  Company Number: JP-BIOCRYST-2021BCR00287

PATIENT
  Age: 70 Year
  Sex: Male

DRUGS (6)
  1. RUEFRIEN [Suspect]
     Active Substance: GLUTAMINE\SODIUM GUALENATE
  2. CALONAL [Suspect]
     Active Substance: ACETAMINOPHEN
  3. SPIOLTO [Suspect]
     Active Substance: OLODATEROL HYDROCHLORIDE\TIOTROPIUM BROMIDE MONOHYDRATE
  4. L?CARBOCISTEINE [Suspect]
     Active Substance: CARBOCYSTEINE
  5. RAPIACTA [Suspect]
     Active Substance: PERAMIVIR
     Dosage: UNK
     Dates: start: 202002, end: 202002
  6. GENINAX [Suspect]
     Active Substance: GARENOXACIN MESYLATE

REACTIONS (1)
  - Urticaria [Unknown]
